FAERS Safety Report 6997526-3 (Version None)
Quarter: 2010Q3

REPORT INFORMATION
  Report Type: 
  Country: None (occurrence: None)
  Receive Date: 20100918
  Receipt Date: 20091015
  Transmission Date: 20110219
  Serious: No
  Sender: FDA-Public Use
  Company Number: US-WYE-H11705809

PATIENT
  Sex: Male
  Weight: 97.61 kg

DRUGS (4)
  1. PRISTIQ [Suspect]
     Indication: DEPRESSION
     Route: 048
     Dates: start: 20090901
  2. XANAX [Concomitant]
     Dosage: QD
     Route: 048
  3. LIPOFENE [Concomitant]
     Dosage: QD
     Route: 048
  4. SEROQUEL [Suspect]
     Dosage: NOT PROVIDED
     Route: 048
     Dates: end: 20091001

REACTIONS (1)
  - NAUSEA [None]
